FAERS Safety Report 6751303-7 (Version None)
Quarter: 2010Q2

REPORT INFORMATION
  Report Type: 
  Country: None (occurrence: None)
  Receive Date: 20100602
  Receipt Date: 20100520
  Transmission Date: 20101027
  Serious: Yes (Other)
  Sender: FDA-Public Use
  Company Number: PHHY2010DE32568

PATIENT
  Sex: Male

DRUGS (2)
  1. SANDIMMUNE [Suspect]
     Indication: LIVER TRANSPLANT
     Dosage: 50 MG, BID
  2. PREDNISOLONE [Concomitant]
     Indication: LIVER TRANSPLANT
     Dosage: 5 MG

REACTIONS (2)
  - CONSTIPATION [None]
  - ILEUS [None]
